FAERS Safety Report 7102777-3 (Version None)
Quarter: 2010Q4

REPORT INFORMATION
  Report Type: 
  Country: None (occurrence: None)
  Receive Date: 20101115
  Receipt Date: 20101104
  Transmission Date: 20110411
  Serious: Yes (Hospitalization)
  Sender: FDA-Public Use
  Company Number: FR-GENENTECH-309334

PATIENT
  Sex: Female
  Weight: 85 kg

DRUGS (3)
  1. MABTHERA [Suspect]
     Indication: PRODUCT USED FOR UNKNOWN INDICATION
     Dosage: 746 MG, UNK
     Route: 042
     Dates: start: 20100819, end: 20100909
  2. GLUCOPHAGE [Suspect]
     Indication: DIABETES MELLITUS
     Dosage: 850 MG, UNK
     Route: 048
     Dates: start: 20100825, end: 20100902
  3. SOLU-MEDROL [Concomitant]
     Indication: PRODUCT USED FOR UNKNOWN INDICATION
     Dosage: 1 MG/KG, UNK

REACTIONS (2)
  - HYPERLACTACIDAEMIA [None]
  - VOMITING [None]
